FAERS Safety Report 6045794-7 (Version None)
Quarter: 2009Q1

REPORT INFORMATION
  Report Type: 
  Country: None (occurrence: None)
  Receive Date: 20090121
  Receipt Date: 20090113
  Transmission Date: 20090719
  Serious: Yes (Other)
  Sender: FDA-Public Use
  Company Number: US-ABBOTT-09P-163-0497143-00

PATIENT
  Sex: Female
  Weight: 56.75 kg

DRUGS (3)
  1. SYNTHROID [Suspect]
     Indication: AUTOIMMUNE THYROIDITIS
     Route: 048
     Dates: start: 19860101
  2. SYNTHROID [Suspect]
     Indication: HYPOTHYROIDISM
  3. ATENOLOL [Concomitant]
     Indication: CARDIAC DISORDER
     Route: 048
     Dates: start: 20000101

REACTIONS (5)
  - BENIGN NEOPLASM OF THYROID GLAND [None]
  - DYSLEXIA [None]
  - NERVOUSNESS [None]
  - PALPITATIONS [None]
  - THYROID CANCER [None]
